FAERS Safety Report 4954532-8 (Version None)
Quarter: 2006Q1

REPORT INFORMATION
  Report Type: 
  Country: None (occurrence: None)
  Receive Date: 20060322
  Receipt Date: 20060310
  Transmission Date: 20060701
  Serious: Yes (Hospitalization)
  Sender: FDA-Public Use
  Company Number: 2006034408

PATIENT
  Age: 43 Year
  Sex: Male

DRUGS (4)
  1. MINOXIDIL [Suspect]
     Indication: MALE PATTERN BALDNESS
     Dosage: 1ML/DOSE X 2, TOPICAL
     Route: 061
     Dates: start: 20051015, end: 20060304
  2. LOXOPROFEN SODIUM (LOXOPROFEN SODIUM) [Concomitant]
  3. TIZANIDINE HCL [Concomitant]
  4. REBAMIPIDE (REBAMIPIDE) [Concomitant]

REACTIONS (2)
  - MYOCARDIAL INFARCTION [None]
  - VENTRICULAR HYPERTROPHY [None]
